FAERS Safety Report 21085498 (Version 2)
Quarter: 2022Q3

REPORT INFORMATION
  Report Type: Spontaneous
  Country: EC (occurrence: EC)
  Receive Date: 20220715
  Receipt Date: 20220823
  Transmission Date: 20221026
  Serious: Yes (Hospitalization, Other)
  Sender: FDA-Public Use
  Company Number: EC-PFIZER INC-202200949315

PATIENT
  Age: 38 Year
  Sex: Male

DRUGS (1)
  1. ENBREL [Suspect]
     Active Substance: ETANERCEPT
     Indication: Movement disorder
     Dosage: UNK, MONTHLY
     Route: 065

REACTIONS (3)
  - Paralysis [Unknown]
  - Rheumatic fever [Unknown]
  - Off label use [Unknown]
